FAERS Safety Report 8353346-9 (Version None)
Quarter: 2012Q2

REPORT INFORMATION
  Report Type: 
  Country: None (occurrence: None)
  Receive Date: 20120511
  Receipt Date: 20120505
  Transmission Date: 20120825
  Serious: Yes (Other)
  Sender: FDA-Public Use
  Company Number: PHHY2012IN038180

PATIENT
  Age: 79 Year
  Sex: Male

DRUGS (2)
  1. TIOTROPIUM BROMIDE (TIOMATE) [Concomitant]
     Indication: CHRONIC OBSTRUCTIVE PULMONARY DISEASE
  2. ONBREZ [Suspect]
     Indication: CHRONIC OBSTRUCTIVE PULMONARY DISEASE
     Dosage: 300 UG, UNK
     Dates: start: 20120420

REACTIONS (6)
  - DRUG INEFFECTIVE [None]
  - DRY MOUTH [None]
  - DYSURIA [None]
  - RESTLESSNESS [None]
  - PULMONARY CONGESTION [None]
  - NASAL CONGESTION [None]
